FAERS Safety Report 25942047 (Version 1)
Quarter: 2025Q4

REPORT INFORMATION
  Report Type: Spontaneous
  Country: JP (occurrence: JP)
  Receive Date: 20251020
  Receipt Date: 20251020
  Transmission Date: 20260117
  Serious: Yes (Hospitalization, Other)
  Sender: MERCK SHARP & DOHME LLC
  Company Number: JP-009507513-2339768

PATIENT
  Age: 76 Year
  Sex: Male

DRUGS (5)
  1. KEYTRUDA [Suspect]
     Active Substance: PEMBROLIZUMAB
     Indication: Oesophageal carcinoma
     Dosage: CYCLE 1
     Route: 065
     Dates: start: 20240115, end: 20240115
  2. KEYTRUDA [Suspect]
     Active Substance: PEMBROLIZUMAB
     Indication: Oesophageal carcinoma
     Dosage: CYCLE 2
     Route: 065
     Dates: start: 20240213, end: 20240213
  3. CISPLATIN\FLUOROURACIL [Suspect]
     Active Substance: CISPLATIN\FLUOROURACIL
     Indication: Oesophageal carcinoma
     Dosage: CYCLE 1
     Dates: start: 20240115, end: 20250115
  4. CISPLATIN\FLUOROURACIL [Suspect]
     Active Substance: CISPLATIN\FLUOROURACIL
     Indication: Oesophageal carcinoma
     Dosage: CYCLE 1
     Dates: start: 20240115, end: 20240115
  5. CISPLATIN\FLUOROURACIL [Suspect]
     Active Substance: CISPLATIN\FLUOROURACIL
     Indication: Oesophageal carcinoma
     Dosage: CYCLE 2
     Dates: start: 20240213, end: 20240213

REACTIONS (13)
  - Pneumonia [Recovering/Resolving]
  - Cerebral venous sinus thrombosis [Recovering/Resolving]
  - Blood pressure decreased [Recovering/Resolving]
  - Disseminated intravascular coagulation [Recovering/Resolving]
  - Acute kidney injury [Recovering/Resolving]
  - Inappropriate schedule of product administration [Unknown]
  - Bicytopenia [Recovering/Resolving]
  - Infectious pleural effusion [Recovering/Resolving]
  - Depressed level of consciousness [Unknown]
  - Respiratory failure [Recovering/Resolving]
  - Cytokine release syndrome [Recovering/Resolving]
  - Haemophagocytic lymphohistiocytosis [Recovering/Resolving]
  - Hypophagia [Unknown]

NARRATIVE: CASE EVENT DATE: 20240101
